FAERS Safety Report 5557341-4 (Version None)
Quarter: 2007Q4

REPORT INFORMATION
  Report Type: 
  Country: None (occurrence: None)
  Receive Date: 20071214
  Receipt Date: 20071022
  Transmission Date: 20080405
  Serious: Yes (Other)
  Sender: FDA-Public Use
  Company Number: US-PURDUE-USA_2007_0030221

PATIENT
  Sex: Male

DRUGS (3)
  1. OXYCODONE HCL [Concomitant]
     Indication: DRUG USE FOR UNKNOWN INDICATION
     Dosage: 5 MG, QID
     Route: 048
  2. DIAZEPAM [Concomitant]
     Indication: DRUG USE FOR UNKNOWN INDICATION
     Dosage: 5 MG, TID
     Route: 048
  3. OXYCONTIN [Suspect]
     Indication: BACK PAIN
     Dosage: 20 MG, TID
     Route: 048
     Dates: start: 19990306, end: 20020525

REACTIONS (7)
  - CONVULSION [None]
  - DELIRIUM TREMENS [None]
  - DIARRHOEA [None]
  - MUSCLE SPASMS [None]
  - NAUSEA [None]
  - NIGHTMARE [None]
  - VOMITING [None]
